FAERS Safety Report 10544632 (Version 1)
Quarter: 2014Q4

REPORT INFORMATION
  Report Type: Spontaneous
  Country: US (occurrence: None)
  Receive Date: 20141010
  Receipt Date: 20141010
  Transmission Date: 20150529
  Serious: No
  Sender: FDA-Public Use
  Company Number: 163-POMAL-14043736

PATIENT
  Age: 78 Year
  Sex: Male

DRUGS (6)
  1. LIPITOR [Concomitant]
     Active Substance: ATORVASTATIN CALCIUM
  2. MULTIVITAMINS (MULTIVITAMINS) (UNKNOWN) [Concomitant]
  3. LEVAQUIN (LEVOFLOXACIN) (UNKNOWN) [Concomitant]
  4. POMALYST [Suspect]
     Active Substance: POMALIDOMIDE
     Indication: PLASMA CELL MYELOMA
     Dosage: 4 MG,  21 IN 21 D,  PO
     Route: 048
     Dates: start: 20130726
  5. ASPRIN [Concomitant]
     Active Substance: ASPIRIN
  6. FLOMAX (TAMSULOSIN HYDROCHLORIDE) (UNKNOWN) [Concomitant]

REACTIONS (2)
  - Rash [None]
  - Abscess oral [None]

NARRATIVE: CASE EVENT DATE: 2014
